FAERS Safety Report 5257245-0 (Version None)
Quarter: 2007Q1

REPORT INFORMATION
  Report Type: 
  Country: None (occurrence: None)
  Receive Date: 20070307
  Receipt Date: 20070301
  Transmission Date: 20070707
  Serious: Yes (Other)
  Sender: FDA-Public Use
  Company Number: FR-JNJFOC-20070204786

PATIENT
  Age: 63 Year
  Sex: Male
  Weight: 70 kg

DRUGS (12)
  1. REMICADE [Suspect]
     Route: 042
  2. REMICADE [Suspect]
     Route: 042
  3. REMICADE [Suspect]
     Route: 042
  4. REMICADE [Suspect]
     Route: 042
  5. REMICADE [Suspect]
     Route: 042
  6. REMICADE [Suspect]
     Indication: CROHN'S DISEASE
     Route: 042
  7. PREVISCAN [Interacting]
     Route: 065
  8. PREVISCAN [Interacting]
     Indication: ATRIAL FIBRILLATION
     Route: 065
  9. ATACAND [Concomitant]
     Route: 065
  10. SOPROL [Concomitant]
     Route: 065
  11. OGAST [Concomitant]
     Route: 065
  12. COUMADIN [Concomitant]
     Route: 065

REACTIONS (5)
  - DRUG INTERACTION [None]
  - HAEMATURIA [None]
  - HYPOCOAGULABLE STATE [None]
  - INTERNATIONAL NORMALISED RATIO INCREASED [None]
  - SUBCUTANEOUS HAEMATOMA [None]
